FAERS Safety Report 7467280-X (Version None)
Quarter: 2011Q2

REPORT INFORMATION
  Report Type: 
  Country: None (occurrence: None)
  Receive Date: 20110509
  Receipt Date: 20101129
  Transmission Date: 20111010
  Serious: No
  Sender: FDA-Public Use
  Company Number: US-ALEXION-A201001525

PATIENT
  Sex: Male

DRUGS (14)
  1. SOLIRIS [Suspect]
     Dosage: 900 MG, Q2W
     Route: 042
     Dates: start: 20101124
  2. DIFLUCAN [Concomitant]
     Dosage: 100 MG, QD
  3. KLACKS SOLUTION [Concomitant]
     Dosage: UNK
  4. LEXAPRO [Concomitant]
     Dosage: 20 MG, QD
  5. COSOPT [Concomitant]
     Dosage: 1 BID
  6. LEVOXYL [Concomitant]
     Dosage: 1 TAB QD
  7. SOLIRIS [Suspect]
     Indication: PAROXYSMAL NOCTURNAL HAEMOGLOBINURIA
     Dosage: 600 MG, QW
     Route: 042
     Dates: start: 20101029, end: 20101119
  8. LIPITOR [Concomitant]
     Dosage: 20 MG, QD
  9. CIPRO [Concomitant]
     Dosage: 500 MG, BID
  10. CLONAZEPAM [Concomitant]
     Dosage: 0.5 MG, BID
  11. VITAMIN A [Concomitant]
     Dosage: 50,000 IU Q4 WEEKS
  12. ALPHAGAN P [Concomitant]
     Dosage: 1 BID
  13. NEXIUM [Concomitant]
     Dosage: 20 MG, QD
  14. XALATAN [Concomitant]
     Dosage: 1 AT BEDTIME

REACTIONS (6)
  - MUSCULOSKELETAL PAIN [None]
  - ARTHRALGIA [None]
  - PAIN IN EXTREMITY [None]
  - MUSCULAR WEAKNESS [None]
  - FALL [None]
  - HAEMATOMA [None]
